FAERS Safety Report 6112376-8 (Version None)
Quarter: 2009Q1

REPORT INFORMATION
  Report Type: 
  Country: None (occurrence: None)
  Receive Date: 20090311
  Receipt Date: 20090311
  Transmission Date: 20090719
  Serious: Yes (Other)
  Sender: FDA-Public Use
  Company Number: None

PATIENT
  Sex: Female
  Weight: 59.8748 kg

DRUGS (2)
  1. PROPOXYPHENE HCL CAP [Suspect]
     Indication: ARNOLD-CHIARI MALFORMATION
     Dosage: 65MG PRN 047, NIGHTLY FOR 6 YEARS
  2. PROPOXYPHENE HCL CAP [Suspect]
     Indication: OSTEOMYELITIS CHRONIC
     Dosage: 65MG PRN 047, NIGHTLY FOR 6 YEARS

REACTIONS (16)
  - ABDOMINAL PAIN UPPER [None]
  - ARTHRALGIA [None]
  - ASTHENIA [None]
  - DIARRHOEA [None]
  - DIZZINESS [None]
  - FEELING COLD [None]
  - HANGOVER [None]
  - HEADACHE [None]
  - HOT FLUSH [None]
  - INFLUENZA [None]
  - MUSCLE SPASMS [None]
  - NAUSEA [None]
  - PERIPHERAL VASCULAR DISORDER [None]
  - PRODUCT QUALITY ISSUE [None]
  - PRODUCT TAMPERING [None]
  - SENSORY LOSS [None]
